FAERS Safety Report 17030071 (Version 1)
Quarter: 2019Q4

REPORT INFORMATION
  Report Type: Spontaneous
  Country: FR (occurrence: FR)
  Receive Date: 20191114
  Receipt Date: 20191114
  Transmission Date: 20200122
  Serious: Yes (Hospitalization)
  Sender: FDA-Public Use
  Company Number: FR-ROCHE-2467992

PATIENT
  Age: 4 Day
  Sex: Female
  Weight: 3.26 kg

DRUGS (3)
  1. VALIUM [Suspect]
     Active Substance: DIAZEPAM
     Indication: CLONUS
     Route: 065
     Dates: start: 20181029, end: 20181029
  2. RIVOTRIL [Suspect]
     Active Substance: CLONAZEPAM
     Indication: CLONUS
     Route: 042
     Dates: start: 20181030, end: 20181030
  3. GARDENAL [PHENOBARBITAL] [Suspect]
     Active Substance: PHENOBARBITAL
     Indication: CLONUS
     Route: 042
     Dates: start: 20181029, end: 20181030

REACTIONS (1)
  - Apnoea [Recovered/Resolved]

NARRATIVE: CASE EVENT DATE: 20181030
